FAERS Safety Report 5508658-0 (Version None)
Quarter: 2007Q4

REPORT INFORMATION
  Report Type: 
  Country: None (occurrence: None)
  Receive Date: 20071105
  Receipt Date: 20071030
  Transmission Date: 20080405
  Serious: Yes (Life-Threatening, Hospitalization)
  Sender: FDA-Public Use
  Company Number: 2007SP010226

PATIENT
  Age: 67 Year
  Sex: Female
  Weight: 46 kg

DRUGS (10)
  1. TEMODAL [Suspect]
     Indication: GLIOBLASTOMA MULTIFORME
     Dosage: 75 MG/M2; QD; PO
     Route: 048
     Dates: start: 20061120, end: 20061219
  2. ZOFRAN [Concomitant]
  3. NIVADIL [Concomitant]
  4. SIMVASTATIN [Concomitant]
  5. DOXAZOSIN MESYLATE [Concomitant]
  6. FAMOTIDINE [Concomitant]
  7. EXCEGRAN [Concomitant]
  8. WAKOBITAL [Concomitant]
  9. PREDNISOLONE [Concomitant]
  10. DECADRON [Concomitant]

REACTIONS (9)
  - ALTERED STATE OF CONSCIOUSNESS [None]
  - C-REACTIVE PROTEIN INCREASED [None]
  - CONVULSION [None]
  - HYDROCEPHALUS [None]
  - HYPOPROTEINAEMIA [None]
  - LYMPHOCYTE COUNT DECREASED [None]
  - NEOPLASM PROGRESSION [None]
  - PNEUMOCYSTIS JIROVECI PNEUMONIA [None]
  - RESPIRATORY FAILURE [None]
